FAERS Safety Report 14846894 (Version 2)
Quarter: 2018Q2

REPORT INFORMATION
  Report Type: Spontaneous
  Country: ES (occurrence: ES)
  Receive Date: 20180504
  Receipt Date: 20180509
  Transmission Date: 20180711
  Serious: Yes (Death, Hospitalization)
  Sender: FDA-Public Use
  Company Number: ES-PFIZER INC-2018183392

PATIENT
  Age: 81 Year
  Sex: Male

DRUGS (7)
  1. DESVENLAFAXINE SUCCINATE MONOHYDRATE [Suspect]
     Active Substance: DESVENLAFAXINE SUCCINATE
     Indication: DEPRESSION
     Dosage: 100 MG DIA
     Route: 048
     Dates: start: 20150828, end: 20170612
  2. SEGURIL [Interacting]
     Active Substance: FUROSEMIDE
     Dosage: 20 MG, 1X/DAY
     Route: 048
     Dates: start: 20120101, end: 20170612
  3. ENALAPRIL [Concomitant]
     Active Substance: ENALAPRIL
     Dosage: 5 MG, 1X/DAY
     Route: 048
     Dates: start: 20120101
  4. BISOPROLOL [Concomitant]
     Active Substance: BISOPROLOL
     Indication: HYPERTENSION
     Dosage: 5 MG, 1X/DAY
     Route: 048
     Dates: start: 20120101
  5. BECLOMETASONA [Interacting]
     Active Substance: BECLOMETHASONE DIPROPIONATE
     Dosage: 2-0-2
     Route: 055
     Dates: start: 20150828
  6. SALMETEROL [Concomitant]
     Active Substance: SALMETEROL
     Dosage: 2-0-2
     Route: 055
     Dates: start: 20150828
  7. TRAZODONA [Interacting]
     Active Substance: TRAZODONE HYDROCHLORIDE
     Dosage: 50 MG, 1X/DAY
     Route: 048
     Dates: start: 20150828, end: 20170612

REACTIONS (2)
  - Heat stroke [Fatal]
  - Drug interaction [Fatal]

NARRATIVE: CASE EVENT DATE: 20170612
